FAERS Safety Report 4518573-7 (Version None)
Quarter: 2004Q4

REPORT INFORMATION
  Report Type: 
  Country: None (occurrence: None)
  Receive Date: 20041201
  Receipt Date: 20041115
  Transmission Date: 20050328
  Serious: Yes (Hospitalization)
  Sender: FDA-Public Use
  Company Number: 184169

PATIENT
  Age: 64 Year
  Sex: Female
  Weight: 68.0396 kg

DRUGS (10)
  1. AVONEX [Suspect]
     Indication: MULTIPLE SCLEROSIS
     Dosage: 30 UG; QW; IM
     Route: 030
     Dates: start: 20030101
  2. CALCIUM [Concomitant]
  3. NEXIUM [Concomitant]
  4. GARLIC [Concomitant]
  5. LODINE [Concomitant]
  6. MULTIVITAMIN [Concomitant]
  7. PLAQUENIL [Concomitant]
  8. AMITRIPTYLINE HCL [Concomitant]
  9. FOLIC ACID [Concomitant]
  10. ACTONEL [Concomitant]

REACTIONS (12)
  - AMNESIA [None]
  - CARDIAC VALVE DISEASE [None]
  - CEREBROVASCULAR ACCIDENT [None]
  - CONDITION AGGRAVATED [None]
  - CONSTIPATION [None]
  - DYSPNOEA [None]
  - EYE SWELLING [None]
  - MULTIPLE SCLEROSIS [None]
  - RESPIRATORY DISORDER [None]
  - SPEECH DISORDER [None]
  - WEIGHT INCREASED [None]
  - WHEEZING [None]
